FAERS Safety Report 4762619-8 (Version None)
Quarter: 2005Q3

REPORT INFORMATION
  Report Type: 
  Country: None (occurrence: None)
  Receive Date: 20050907
  Receipt Date: 20050722
  Transmission Date: 20060218
  Serious: Yes (Death, Hospitalization)
  Sender: FDA-Public Use
  Company Number: JP-GLAXOSMITHKLINE-B0389149A

PATIENT
  Age: 80 Year
  Sex: Female
  Weight: 61.9 kg

DRUGS (14)
  1. CEFAZOLIN [Suspect]
     Indication: INFECTION
     Dosage: .5G TWICE PER DAY
     Route: 042
     Dates: start: 20050423, end: 20050401
  2. REMICADE [Suspect]
     Indication: RHEUMATOID ARTHRITIS
     Dosage: 3MGK PER DAY
     Route: 042
     Dates: start: 20050328, end: 20050411
  3. PREDNISOLONE [Suspect]
     Indication: RHEUMATOID ARTHRITIS
     Route: 048
     Dates: start: 20020201, end: 20050401
  4. RHEUMATREX [Suspect]
     Indication: RHEUMATOID ARTHRITIS
     Route: 048
     Dates: start: 20050212, end: 20050401
  5. FLUCAM [Suspect]
     Indication: RHEUMATOID ARTHRITIS
     Dosage: 27MG PER DAY
     Route: 048
     Dates: start: 20020201, end: 20050101
  6. PRORENAL [Concomitant]
     Route: 065
     Dates: start: 20040211
  7. BONALON [Concomitant]
     Route: 065
     Dates: start: 20040218
  8. ROCALTROL [Concomitant]
     Route: 065
     Dates: start: 20040211
  9. CALCIUM L-ASPARTATE [Concomitant]
     Route: 065
     Dates: start: 20040218
  10. MEXILETINE HYDROCHLORIDE [Concomitant]
     Route: 065
     Dates: start: 20050423
  11. RIMATIL [Concomitant]
     Route: 065
  12. MECOBALAMIN [Concomitant]
     Route: 065
     Dates: start: 20040211
  13. NEUTROPIN [Concomitant]
     Route: 065
     Dates: start: 20040211
  14. PROSTANDIN [Concomitant]
     Route: 065
     Dates: start: 20050423

REACTIONS (14)
  - ARRHYTHMIA [None]
  - BLOOD PRESSURE DECREASED [None]
  - BONE MARROW DEPRESSION [None]
  - CARDIAC ARREST [None]
  - CERVICAL VERTEBRAL FRACTURE [None]
  - DEPRESSED LEVEL OF CONSCIOUSNESS [None]
  - LOSS OF CONSCIOUSNESS [None]
  - MUCOSAL INFLAMMATION [None]
  - MULTI-ORGAN FAILURE [None]
  - MUSCULAR WEAKNESS [None]
  - PANCYTOPENIA [None]
  - RESPIRATORY DISORDER [None]
  - TENDON DISORDER [None]
  - URINE OUTPUT DECREASED [None]
